FAERS Safety Report 5773157-8 (Version None)
Quarter: 2008Q2

REPORT INFORMATION
  Report Type: 
  Country: None (occurrence: None)
  Receive Date: 20080616
  Receipt Date: 20080318
  Transmission Date: 20081010
  Serious: No
  Sender: FDA-Public Use
  Company Number: US-BAYER-200811267BCC

PATIENT
  Age: 62 Year
  Sex: Female
  Weight: 77 kg

DRUGS (4)
  1. ALEVE (CAPLET) [Suspect]
     Indication: OSTEOPENIA
     Dosage: AS USED: 220 MG  UNIT DOSE: 220 MG
     Route: 048
  2. ONE-A-DAY 50 PLUS ADVANTAGE [Suspect]
     Route: 048
  3. BONIVA [Concomitant]
  4. ONE-A-DAY 50 PLUS ADVANTAGE [Concomitant]

REACTIONS (2)
  - ABDOMINAL PAIN UPPER [None]
  - ANOREXIA [None]
